FAERS Safety Report 25228517 (Version 3)
Quarter: 2025Q3

REPORT INFORMATION
  Report Type: Report from Study
  Country: CA (occurrence: CA)
  Receive Date: 20250423
  Receipt Date: 20250831
  Transmission Date: 20251021
  Serious: Yes (Other)
  Sender: CSL BEHRING
  Company Number: CA-BEH-2025200448

PATIENT
  Age: 71 Year
  Sex: Male
  Weight: 42.993 kg

DRUGS (7)
  1. HIZENTRA [Suspect]
     Active Substance: HUMAN IMMUNOGLOBULIN G
     Indication: Secondary immunodeficiency
     Dosage: UNK UNK, QW
     Route: 058
     Dates: start: 20240728
  2. HIZENTRA [Suspect]
     Active Substance: HUMAN IMMUNOGLOBULIN G
     Dosage: 10 G, QW
     Route: 058
     Dates: start: 20240728
  3. HIZENTRA [Suspect]
     Active Substance: HUMAN IMMUNOGLOBULIN G
     Dosage: 10 G
     Route: 058
  4. HIZENTRA [Suspect]
     Active Substance: HUMAN IMMUNOGLOBULIN G
     Dosage: 10 G, QW
     Route: 058
     Dates: start: 20240728
  5. GABAPENTIN [Concomitant]
     Active Substance: GABAPENTIN
     Indication: Product used for unknown indication
     Route: 065
  6. Dulcolax [Concomitant]
     Indication: Premedication
     Dates: start: 20250712
  7. PICOLAX (ANHYDROUS CITRIC ACID\MAGNESIUM OXIDE\SODIUM PICOSULFATE) [Concomitant]
     Active Substance: ANHYDROUS CITRIC ACID\MAGNESIUM OXIDE\SODIUM PICOSULFATE
     Indication: Premedication
     Dates: start: 20250713, end: 20250714

REACTIONS (6)
  - Tooth extraction [Unknown]
  - Blood potassium increased [Unknown]
  - Blood creatinine increased [Unknown]
  - Tooth fracture [Unknown]
  - Blood potassium decreased [Unknown]
  - Vision blurred [Recovering/Resolving]

NARRATIVE: CASE EVENT DATE: 20250322
